FAERS Safety Report 18896004 (Version 2)
Quarter: 2021Q1

REPORT INFORMATION
  Report Type: Other
  Country: CA (occurrence: CA)
  Receive Date: 20210216
  Receipt Date: 20210219
  Transmission Date: 20210420
  Serious: No
  Sender: FDA-Public Use
  Company Number: CA-ROCHE-2770081

PATIENT
  Age: 49 Year
  Sex: Male

DRUGS (9)
  1. OCREVUS [Suspect]
     Active Substance: OCRELIZUMAB
     Indication: RELAPSING-REMITTING MULTIPLE SCLEROSIS
     Dosage: 300 MG AT DAY 0 AND 14, THEN 600 MG EVERY 6 MONTH
     Route: 042
     Dates: start: 20180124
  2. CLONAZEPAM. [Concomitant]
     Active Substance: CLONAZEPAM
  3. FAMCICLOVIR. [Concomitant]
     Active Substance: FAMCICLOVIR
  4. CLONAZEPAM. [Concomitant]
     Active Substance: CLONAZEPAM
  5. FAMPYRA [Concomitant]
     Active Substance: DALFAMPRIDINE
  6. DULOXETINE. [Concomitant]
     Active Substance: DULOXETINE
  7. BACLOFEN. [Concomitant]
     Active Substance: BACLOFEN
  8. GABAPENTIN. [Concomitant]
     Active Substance: GABAPENTIN
     Indication: PAIN
  9. OCREVUS [Suspect]
     Active Substance: OCRELIZUMAB
     Route: 042

REACTIONS (1)
  - Herpes zoster [Recovered/Resolved]

NARRATIVE: CASE EVENT DATE: 20210204
